FAERS Safety Report 13803395 (Version 2)
Quarter: 2017Q3

REPORT INFORMATION
  Report Type: Spontaneous
  Country: GB (occurrence: GB)
  Receive Date: 20170728
  Receipt Date: 20170824
  Transmission Date: 20171127
  Serious: Yes (Other)
  Sender: FDA-Public Use
  Company Number: GB-ASTELLAS-2017US029463

PATIENT
  Age: 49 Year
  Sex: Female

DRUGS (3)
  1. TACROLIMUS. [Suspect]
     Active Substance: TACROLIMUS
     Indication: RENAL TRANSPLANT
     Dosage: 0.75 MG, TWICE DAILY
     Route: 048
     Dates: start: 201512
  2. FOSCARNET [Suspect]
     Active Substance: FOSCARNET
     Dosage: UNK UNK, UNKNOWN FREQ. (SECOND TREATMENT)
     Route: 065
  3. FOSCARNET [Suspect]
     Active Substance: FOSCARNET
     Indication: CYTOMEGALOVIRUS VIRAEMIA
     Dosage: UNK UNK, UNKNOWN FREQ. (FIRST TREATMENT)
     Route: 065

REACTIONS (3)
  - Vulvovaginal ulceration [Recovered/Resolved]
  - Cytomegalovirus viraemia [Not Recovered/Not Resolved]
  - Neuropathy peripheral [Recovering/Resolving]

NARRATIVE: CASE EVENT DATE: 201601
